FAERS Safety Report 8144101-3 (Version None)
Quarter: 2012Q1

REPORT INFORMATION
  Report Type: 
  Country: None (occurrence: None)
  Receive Date: 20120217
  Receipt Date: 20120208
  Transmission Date: 20120608
  Serious: Yes (Other)
  Sender: FDA-Public Use
  Company Number: FR-JNJFOC-20120104911

PATIENT
  Age: 57 Year
  Sex: Female
  Weight: 69 kg

DRUGS (6)
  1. REMICADE [Suspect]
     Route: 042
  2. REMICADE [Suspect]
     Indication: CROHN'S DISEASE
     Dosage: 6TH INFUSION
     Route: 042
  3. REMICADE [Suspect]
     Route: 042
     Dates: start: 20110101
  4. LERCANIDIPINE [Concomitant]
     Route: 065
  5. CLORAZEPATE DIPOTASSIUM [Concomitant]
     Route: 065
  6. RAMIPRIL [Concomitant]
     Route: 065

REACTIONS (4)
  - FORMICATION [None]
  - DYSAESTHESIA [None]
  - CONVULSION [None]
  - BURNING SENSATION [None]
